FAERS Safety Report 11012502 (Version 1)
Quarter: 2015Q2

REPORT INFORMATION
  Report Type: Spontaneous
  Country: US (occurrence: None)
  Receive Date: 20150410
  Receipt Date: 20150410
  Transmission Date: 20150821
  Serious: Yes (Disabling)
  Sender: FDA-Public Use
  Company Number: None

PATIENT
  Age: 61 Year
  Sex: Female

DRUGS (12)
  1. PREDNISONE. [Concomitant]
     Active Substance: PREDNISONE
  2. ACETAMINOPHEN. [Concomitant]
     Active Substance: ACETAMINOPHEN
  3. FOLIC ACID. [Concomitant]
     Active Substance: FOLIC ACID
  4. METHOTREXATE [Concomitant]
     Active Substance: METHOTREXATE
  5. TRAMADOL [Concomitant]
     Active Substance: TRAMADOL
  6. MOBIC [Concomitant]
     Active Substance: MELOXICAM
  7. MULTI-VITAMIN [Concomitant]
     Active Substance: .ALPHA.-TOCOPHEROL ACETATE, DL-\ASCORBIC ACID\CYANOCOBALAMIN\FLUORIDE ION\FOLIC ACID\NIACIN\PYRIDOXINE\RIBOFLAVIN\THIAMINE\VITAMIN A\VITAMIN D
  8. CYMBALTA [Concomitant]
     Active Substance: DULOXETINE HYDROCHLORIDE
  9. PREMPRO [Concomitant]
     Active Substance: ESTROGENS, CONJUGATED\MEDROXYPROGESTERONE ACETATE
  10. CALCIUM+D [Concomitant]
  11. PROLIA [Suspect]
     Active Substance: DENOSUMAB
     Indication: OSTEOPOROSIS
     Dosage: 2 INJECTIONS/YEAR 2 INJECTIONS/YEAR GIVEN INTO/UNDER THE SKIN
     Route: 058
     Dates: start: 20140603, end: 20150408
  12. PROLIA [Concomitant]
     Active Substance: DENOSUMAB

REACTIONS (8)
  - Injection site pain [None]
  - Product quality issue [None]
  - Pain in extremity [None]
  - Movement disorder [None]
  - Arthralgia [None]
  - Back pain [None]
  - Disturbance in attention [None]
  - Gait disturbance [None]

NARRATIVE: CASE EVENT DATE: 20140701
